FAERS Safety Report 5234180-5 (Version None)
Quarter: 2007Q1

REPORT INFORMATION
  Report Type: 
  Country: None (occurrence: None)
  Receive Date: 20070209
  Receipt Date: 20070129
  Transmission Date: 20070707
  Serious: Yes (Hospitalization)
  Sender: FDA-Public Use
  Company Number: FR-JNJFOC-20040909770

PATIENT
  Sex: Male
  Weight: 65 kg

DRUGS (7)
  1. REMICADE [Suspect]
     Indication: PSORIATIC ARTHROPATHY
     Dosage: APPROX 10 INFUSIONS
     Route: 042
  2. NOVATREX [Suspect]
     Indication: DRUG USE FOR UNKNOWN INDICATION
     Route: 048
  3. ROCEPHIN [Concomitant]
  4. ROCEPHIN [Concomitant]
  5. ROCEPHIN [Concomitant]
  6. SOLU-MEDROL [Concomitant]
  7. SOLU-MEDROL [Concomitant]

REACTIONS (1)
  - TUBERCULOSIS [None]
